FAERS Safety Report 20884258 (Version 1)
Quarter: 2022Q2

REPORT INFORMATION
  Report Type: Spontaneous
  Country: US (occurrence: None)
  Receive Date: 20220526
  Receipt Date: 20220526
  Transmission Date: 20220721
  Serious: Yes (Death)
  Sender: FDA-Public Use
  Company Number: None

PATIENT
  Age: 76 Year
  Sex: Female
  Weight: 5.85 kg

DRUGS (7)
  1. PROLIA [Suspect]
     Active Substance: DENOSUMAB
     Indication: Bone density decreased
     Dosage: OTHER FREQUENCY : Q 6 MONTHS;?
     Route: 058
     Dates: start: 201801
  2. Aspirin Adult [Concomitant]
  3. BIOTIN [Concomitant]
     Active Substance: BIOTIN
  4. MINERALS\VITAMINS [Concomitant]
     Active Substance: MINERALS\VITAMINS
  5. Citracal + D3 [Concomitant]
  6. Fish Oil + D3 [Concomitant]
  7. LIPITOR [Concomitant]
     Active Substance: ATORVASTATIN CALCIUM

REACTIONS (1)
  - Death [None]
